FAERS Safety Report 16793143 (Version 1)
Quarter: 2019Q3

REPORT INFORMATION
  Report Type: Spontaneous
  Country: US (occurrence: US)
  Receive Date: 20190911
  Receipt Date: 20190911
  Transmission Date: 20191005
  Serious: Yes (Other)
  Sender: FDA-Public Use
  Company Number: US-ROCHE-2387943

PATIENT
  Age: 88 Year
  Sex: Male
  Weight: 74 kg

DRUGS (16)
  1. XELODA [Suspect]
     Active Substance: CAPECITABINE
     Indication: COLON CANCER
     Dosage: ONLY ON WEEKDAYS ;ONGOING: NO
     Route: 048
     Dates: start: 20181112, end: 20181203
  2. FISH OIL [Concomitant]
     Active Substance: FISH OIL
     Route: 048
  3. COENZYME Q10 [Concomitant]
     Active Substance: UBIDECARENONE
     Dosage: YES
     Route: 048
  4. ATORVASTATIN [Concomitant]
     Active Substance: ATORVASTATIN
     Indication: ISCHAEMIC CARDIOMYOPATHY
     Route: 048
     Dates: start: 20190509
  5. VITAMIN C [Concomitant]
     Active Substance: ASCORBIC ACID
     Route: 048
  6. ELIQUIS [Concomitant]
     Active Substance: APIXABAN
     Indication: ATRIAL FIBRILLATION
     Route: 048
     Dates: start: 20190506
  7. HORSE CHESTNUT [AESCULUS HIPPOCASTANUM] [Concomitant]
     Active Substance: HORSE CHESTNUT
     Route: 048
  8. ASPIRIN [ACETYLSALICYLIC ACID] [Concomitant]
     Active Substance: ASPIRIN
     Indication: ISCHAEMIC CARDIOMYOPATHY
     Route: 048
     Dates: start: 20190509
  9. METOPROLOL SUCCINATE. [Concomitant]
     Active Substance: METOPROLOL SUCCINATE
     Indication: CHRONIC LEFT VENTRICULAR FAILURE
     Route: 048
     Dates: start: 20190511
  10. LYSINE [Concomitant]
     Active Substance: LYSINE
     Dosage: YES
     Route: 048
  11. LISINOPRIL. [Concomitant]
     Active Substance: LISINOPRIL
     Indication: CHRONIC LEFT VENTRICULAR FAILURE
     Route: 048
     Dates: start: 20190504
  12. ASTRAGALUS SPP. [Concomitant]
     Route: 048
  13. LUTEIN [XANTOFYL] [Concomitant]
     Dosage: YES
     Route: 048
  14. SPIRONOLACTONE. [Concomitant]
     Active Substance: SPIRONOLACTONE
     Indication: CHRONIC LEFT VENTRICULAR FAILURE
     Route: 048
     Dates: start: 20190511
  15. BILBERRY [VACCINIUM MYRTILLUS] [Concomitant]
     Route: 048
  16. LASIX [Concomitant]
     Active Substance: FUROSEMIDE
     Indication: CHRONIC LEFT VENTRICULAR FAILURE
     Route: 048
     Dates: start: 20190504

REACTIONS (7)
  - Ischaemic cardiomyopathy [Not Recovered/Not Resolved]
  - Atrial fibrillation [Not Recovered/Not Resolved]
  - Coronary artery disease [Not Recovered/Not Resolved]
  - Off label use [Unknown]
  - Coronary artery occlusion [Not Recovered/Not Resolved]
  - Palmar-plantar erythrodysaesthesia syndrome [Recovering/Resolving]
  - Chronic left ventricular failure [Not Recovered/Not Resolved]

NARRATIVE: CASE EVENT DATE: 201905
